FAERS Safety Report 4779004-5 (Version None)
Quarter: 2005Q3

REPORT INFORMATION
  Report Type: 
  Country: None (occurrence: None)
  Receive Date: 20050914
  Receipt Date: 20050523
  Transmission Date: 20060218
  Serious: Yes (Other)
  Sender: FDA-Public Use
  Company Number: 405754

PATIENT
  Sex: Female

DRUGS (1)
  1. BONIVA [Suspect]
     Dosage: 150 MG 1 PER MONTH ORAL
     Route: 048
     Dates: start: 20050516

REACTIONS (3)
  - ERYTHEMA [None]
  - RASH PAPULAR [None]
  - RASH PRURITIC [None]
